FAERS Safety Report 14845895 (Version 2)
Quarter: 2018Q4

REPORT INFORMATION
  Report Type: Spontaneous
  Country: FR (occurrence: FR)
  Receive Date: 20180504
  Receipt Date: 20181025
  Transmission Date: 20190204
  Serious: Yes (Other)
  Sender: FDA-Public Use
  Company Number: FR-MERCK KGAA-2047165

PATIENT
  Age: 60 Year
  Sex: Female

DRUGS (1)
  1. EUTHYROX [Suspect]
     Active Substance: LEVOTHYROXINE SODIUM
     Indication: PRODUCT USED FOR UNKNOWN INDICATION
     Dates: start: 201708, end: 201710

REACTIONS (22)
  - Coordination abnormal [Recovering/Resolving]
  - Weight increased [Recovering/Resolving]
  - Tachycardia [Recovering/Resolving]
  - Headache [Recovering/Resolving]
  - Thyroxine free increased [None]
  - Disturbance in attention [Recovering/Resolving]
  - Irritability [Recovering/Resolving]
  - Blood cholesterol increased [Recovering/Resolving]
  - Fatigue [Recovering/Resolving]
  - Blood thyroid stimulating hormone decreased [None]
  - Hypokinesia [Recovering/Resolving]
  - Gamma-glutamyltransferase increased [None]
  - Insomnia [Recovered/Resolved]
  - Sleep disorder [Recovered/Resolved]
  - Apathy [Recovering/Resolving]
  - Dizziness [Recovering/Resolving]
  - Malaise [Recovering/Resolving]
  - Dyspnoea [Recovering/Resolving]
  - Alopecia [Recovering/Resolving]
  - Amnesia [Recovering/Resolving]
  - Stress [Recovering/Resolving]
  - Impaired driving ability [Recovering/Resolving]

NARRATIVE: CASE EVENT DATE: 2017
